FAERS Safety Report 23770075 (Version 3)
Quarter: 2024Q3

REPORT INFORMATION
  Report Type: Report from Study
  Country: ES (occurrence: ES)
  Receive Date: 20240422
  Receipt Date: 20240924
  Transmission Date: 20241017
  Serious: Yes (Death, Hospitalization, Other)
  Sender: TAKEDA
  Company Number: ES-TAKEDA-2024TUS027942

PATIENT
  Sex: Female

DRUGS (1)
  1. FRUQUINTINIB [Suspect]
     Active Substance: FRUQUINTINIB
     Indication: Product used for unknown indication
     Dosage: UNK
     Route: 065
     Dates: end: 20240311

REACTIONS (8)
  - Hepatic cancer metastatic [Fatal]
  - Hepatic failure [Fatal]
  - Malignant neoplasm progression [Unknown]
  - General physical health deterioration [Unknown]
  - Jaundice [Unknown]
  - Eastern Cooperative Oncology Group performance status worsened [Unknown]
  - Blood bilirubin increased [Unknown]
  - Arthralgia [Recovered/Resolved]

NARRATIVE: CASE EVENT DATE: 20240406
